FAERS Safety Report 18571792 (Version 1)
Quarter: 2020Q4

REPORT INFORMATION
  Report Type: Spontaneous
  Country: US (occurrence: US)
  Receive Date: 20201202
  Receipt Date: 20201202
  Transmission Date: 20210114
  Serious: No
  Sender: FDA-Public Use
  Company Number: US-BAUSCH-BL-2020-032780

PATIENT
  Sex: Female

DRUGS (2)
  1. WELLBUTRIN XL [Suspect]
     Active Substance: BUPROPION HYDROCHLORIDE
     Indication: MAJOR DEPRESSION
     Dosage: STARTED ON 1997 OR 19981, 1 TABLET OF 300 MG PLUS 1 TABLET OF 150 MG (TOTAL 450 MG ONCE DAILY)
     Route: 048
  2. WELLBUTRIN XL [Suspect]
     Active Substance: BUPROPION HYDROCHLORIDE
     Dosage: 3 TABLETS OF THE 150 MG TABLETS A DAY
     Route: 048

REACTIONS (4)
  - Loss of consciousness [Unknown]
  - Product residue present [Not Recovered/Not Resolved]
  - Vomiting [Unknown]
  - Hypohidrosis [Unknown]

NARRATIVE: CASE EVENT DATE: 20201031
